FAERS Safety Report 24223984 (Version 1)
Quarter: 2024Q3

REPORT INFORMATION
  Report Type: Report from Study
  Country: US (occurrence: US)
  Receive Date: 20240819
  Receipt Date: 20240819
  Transmission Date: 20241016
  Serious: Yes (Hospitalization)
  Sender: ABBVIE
  Company Number: US-ABBVIE-5880204

PATIENT
  Sex: Male

DRUGS (2)
  1. MAVYRET [Suspect]
     Active Substance: GLECAPREVIR\PIBRENTASVIR
     Indication: Chronic hepatitis C
     Dosage: 3 TABLETS DAILY
     Route: 048
     Dates: start: 202402
  2. FINASTERIDE [Concomitant]
     Active Substance: FINASTERIDE
     Indication: Product used for unknown indication

REACTIONS (6)
  - Neoplasm prostate [Recovering/Resolving]
  - Blood urine present [Recovering/Resolving]
  - Rheumatoid arthritis [Recovering/Resolving]
  - Rash macular [Recovering/Resolving]
  - Skin discolouration [Recovering/Resolving]
  - Hypertension [Recovering/Resolving]

NARRATIVE: CASE EVENT DATE: 20240101
